FAERS Safety Report 16006426 (Version 1)
Quarter: 2019Q1

REPORT INFORMATION
  Report Type: Spontaneous
  Country: US (occurrence: US)
  Receive Date: 20190226
  Receipt Date: 20190226
  Transmission Date: 20190418
  Serious: No
  Sender: FDA-Public Use
  Company Number: US-FERRINGPH-2018FE03154

PATIENT
  Age: 26 Year
  Sex: Female
  Weight: 60.77 kg

DRUGS (12)
  1. ERGOCALCIFEROL. [Concomitant]
     Active Substance: ERGOCALCIFEROL
     Indication: PRODUCT USED FOR UNKNOWN INDICATION
     Dosage: 500000 UNITS, EVERY SUNDAY
     Route: 065
  2. DDAVP [Suspect]
     Active Substance: DESMOPRESSIN ACETATE
     Indication: DIABETES INSIPIDUS
     Dosage: 0.5 MG TO 0.75 MG MORNING AND 0.1 MG AT NIGHT
     Route: 065
     Dates: end: 201803
  3. MULTIVITAMIN                       /00097801/ [Concomitant]
     Active Substance: VITAMINS
     Indication: PRODUCT USED FOR UNKNOWN INDICATION
     Dosage: 1 TAB
     Route: 048
  4. LEVOTHYROXINE. [Concomitant]
     Active Substance: LEVOTHYROXINE
     Dosage: 50 ?G, UNK
     Route: 065
     Dates: start: 2016
  5. HYDROCORTISONE. [Concomitant]
     Active Substance: HYDROCORTISONE
     Indication: PRODUCT USED FOR UNKNOWN INDICATION
     Dosage: 10 MG IN AM AND 2.5 MG IN PM
     Route: 065
  6. NORETHINDRONE ACETATE AND ETHINYL ESTRADIOL [Concomitant]
     Active Substance: ETHINYL ESTRADIOL\NORETHINDRONE ACETATE
     Indication: PRODUCT USED FOR UNKNOWN INDICATION
     Dosage: 1.5-30 MG/MCG
     Route: 048
  7. DDAVP [Suspect]
     Active Substance: DESMOPRESSIN ACETATE
     Dosage: 0.1 MG, 3 TIMES DAILY
     Route: 065
     Dates: start: 2016
  8. LEVOTHYROXINE. [Concomitant]
     Active Substance: LEVOTHYROXINE
     Indication: AUTOIMMUNE THYROIDITIS
     Dosage: 88 ?G, DAILY
     Route: 065
  9. LOESTRIN NOS [Concomitant]
     Active Substance: ETHINYL ESTRADIOL\NORETHINDRONE ACETATE
     Indication: MOOD SWINGS
     Dosage: 0.075 MG, 2 TIMES DAILY
     Route: 065
     Dates: start: 201803
  10. LEVOTHYROXINE. [Concomitant]
     Active Substance: LEVOTHYROXINE
     Dosage: 25 ?G, UNK
     Dates: start: 2006, end: 2016
  11. HYDROCORTISONE. [Concomitant]
     Active Substance: HYDROCORTISONE
     Indication: PRODUCT USED FOR UNKNOWN INDICATION
     Dosage: 10 MG AT 8:30 AM, 2.5 MG AT 4 PM
     Route: 065
  12. GENOTROPIN [Concomitant]
     Active Substance: SOMATROPIN
     Indication: GROWTH HORMONE DEFICIENCY
     Dosage: 0.3 MG, DAILY
     Route: 065

REACTIONS (2)
  - Fluid retention [Unknown]
  - Incorrect dose administered [Unknown]

NARRATIVE: CASE EVENT DATE: 201803
